FAERS Safety Report 25579742 (Version 2)
Quarter: 2025Q3

REPORT INFORMATION
  Report Type: Spontaneous
  Country: CN (occurrence: CN)
  Receive Date: 20250718
  Receipt Date: 20250724
  Transmission Date: 20251021
  Serious: Yes (Other)
  Sender: MERCK SHARP & DOHME LLC
  Company Number: CN-009507513-2309856

PATIENT
  Age: 69 Year
  Sex: Male
  Weight: 65 kg

DRUGS (10)
  1. APREPITANT [Suspect]
     Active Substance: APREPITANT
     Indication: Prophylaxis of nausea and vomiting
     Dates: start: 20240110
  2. PALONOSETRON [Suspect]
     Active Substance: PALONOSETRON
     Indication: Prophylaxis of nausea and vomiting
     Dates: start: 20240110
  3. DEXAMETHASONE [Suspect]
     Active Substance: DEXAMETHASONE
     Indication: Prophylaxis of nausea and vomiting
     Dates: start: 20240110
  4. PACLITAXEL [Suspect]
     Active Substance: PACLITAXEL
     Indication: Lung squamous cell carcinoma metastatic
     Dates: start: 20240110, end: 2024
  5. CARBOPLATIN [Suspect]
     Active Substance: CARBOPLATIN
     Indication: Lung squamous cell carcinoma metastatic
     Dates: start: 20240110, end: 2024
  6. TISLELIZUMAB [Concomitant]
     Active Substance: TISLELIZUMAB
     Indication: Lung squamous cell carcinoma metastatic
     Dates: start: 20240110, end: 2024
  7. METOPROLOL SUCCINATE [Concomitant]
     Active Substance: METOPROLOL SUCCINATE
  8. ISOSORBIDE MONONITRATE [Concomitant]
     Active Substance: ISOSORBIDE MONONITRATE
  9. ATORVASTATIN CALCIUM [Concomitant]
     Active Substance: ATORVASTATIN CALCIUM
  10. CLOPIDOGREL BISULFATE [Concomitant]
     Active Substance: CLOPIDOGREL BISULFATE

REACTIONS (7)
  - Myelosuppression [Unknown]
  - Drug ineffective [Unknown]
  - Chemotherapeutic drug level increased [Unknown]
  - Vomiting [Unknown]
  - Stomatitis [Recovering/Resolving]
  - Nausea [Unknown]
  - Diarrhoea [Recovering/Resolving]

NARRATIVE: CASE EVENT DATE: 20240101
